FAERS Safety Report 21426139 (Version 2)
Quarter: 2022Q4

REPORT INFORMATION
  Report Type: Spontaneous
  Country: US (occurrence: US)
  Receive Date: 20221008
  Receipt Date: 20221026
  Transmission Date: 20230113
  Serious: No
  Sender: FDA-Public Use
  Company Number: US-UNITED THERAPEUTICS-UNT-2022-022686

PATIENT
  Sex: Female

DRUGS (6)
  1. REMODULIN [Suspect]
     Active Substance: TREPROSTINIL
     Indication: Pulmonary arterial hypertension
     Dosage: UNK, CONTINUING
     Route: 058
     Dates: start: 20220928
  2. REMODULIN [Suspect]
     Active Substance: TREPROSTINIL
     Dosage: 0.01222 ?G/KG, CONTINUING
     Route: 058
     Dates: start: 202209
  3. REMODULIN [Suspect]
     Active Substance: TREPROSTINIL
     Dosage: 0.01344 ?G/KG, CONTINUING
     Route: 058
     Dates: start: 202209
  4. REMODULIN [Suspect]
     Active Substance: TREPROSTINIL
     Dosage: 0.01588 ?G/KG, CONTINUING
     Route: 058
     Dates: start: 2022
  5. UPTRAVI [Suspect]
     Active Substance: SELEXIPAG
     Indication: Pulmonary hypertension
     Dosage: UNK
     Route: 065
     Dates: start: 20210430
  6. AMBRISENTAN [Concomitant]
     Active Substance: AMBRISENTAN
     Indication: Pulmonary hypertension
     Dosage: 10 MG, QD
     Route: 065
     Dates: start: 20190724

REACTIONS (5)
  - Headache [Unknown]
  - Nausea [Recovering/Resolving]
  - Infusion site pain [Recovering/Resolving]
  - Dizziness postural [Recovered/Resolved]
  - Dizziness [Unknown]

NARRATIVE: CASE EVENT DATE: 20220101
